FAERS Safety Report 11318105 (Version 1)
Quarter: 2015Q3

REPORT INFORMATION
  Report Type: Spontaneous
  Country: US (occurrence: US)
  Receive Date: 20150728
  Receipt Date: 20150728
  Transmission Date: 20151125
  Serious: Yes (Other)
  Sender: FDA-Public Use
  Company Number: US-SHIRE-US201508368

PATIENT
  Age: 1 Week
  Sex: Female

DRUGS (2)
  1. LIALDA [Suspect]
     Active Substance: MESALAMINE
     Indication: EXPOSURE DURING BREAST FEEDING
  2. LIALDA [Suspect]
     Active Substance: MESALAMINE
     Indication: MATERNAL EXPOSURE DURING PREGNANCY
     Dosage: UNK, UNKNOWN
     Route: 048

REACTIONS (4)
  - Premature baby [Unknown]
  - Umbilical cord abnormality [Recovered/Resolved]
  - Maternal exposure timing unspecified [Recovered/Resolved]
  - Exposure during breast feeding [Not Recovered/Not Resolved]

NARRATIVE: CASE EVENT DATE: 201507
